FAERS Safety Report 23285890 (Version 1)
Quarter: 2023Q4

REPORT INFORMATION
  Report Type: Spontaneous
  Country: CA (occurrence: CA)
  Receive Date: 20231212
  Receipt Date: 20231212
  Transmission Date: 20240110
  Serious: Yes (Other)
  Sender: FDA-Public Use
  Company Number: CA-SANDOZ-SDZ2023CA063974

PATIENT
  Age: 79 Year
  Sex: Male
  Weight: 73 kg

DRUGS (1)
  1. TRAVOPROST [Suspect]
     Active Substance: TRAVOPROST
     Indication: Ocular hypertension
     Dosage: 1 DROP, QD
     Route: 065

REACTIONS (5)
  - Abnormal sensation in eye [Recovering/Resolving]
  - Dry eye [Recovering/Resolving]
  - Eye irritation [Recovering/Resolving]
  - Photophobia [Recovering/Resolving]
  - Liquid product physical issue [Recovering/Resolving]
